FAERS Safety Report 22187381 (Version 1)
Quarter: 2023Q2

REPORT INFORMATION
  Report Type: Spontaneous
  Country: GB (occurrence: GB)
  Receive Date: 20230407
  Receipt Date: 20230407
  Transmission Date: 20230721
  Serious: Yes (Life-Threatening, Other)
  Sender: FDA-Public Use
  Company Number: GB-VALIDUS PHARMACEUTICALS LLC-GB-VDP-2017-012629

PATIENT

DRUGS (21)
  1. ERGOCALCIFEROL [Suspect]
     Active Substance: ERGOCALCIFEROL
     Indication: Supplementation therapy
     Dosage: UNK
     Route: 065
     Dates: start: 2011
  2. EXEMESTANE [Suspect]
     Active Substance: EXEMESTANE
     Indication: Metastases to bone
     Dosage: UNK
     Route: 065
     Dates: start: 2011
  3. EXEMESTANE [Suspect]
     Active Substance: EXEMESTANE
     Indication: Metastases to lung
  4. EXEMESTANE [Suspect]
     Active Substance: EXEMESTANE
     Indication: Invasive breast carcinoma
  5. EXEMESTANE [Suspect]
     Active Substance: EXEMESTANE
     Indication: Metastases to liver
  6. EXEMESTANE [Suspect]
     Active Substance: EXEMESTANE
     Indication: Neoplasm progression
  7. ZOLEDRONIC ACID [Suspect]
     Active Substance: ZOLEDRONIC ACID
     Indication: Breast cancer metastatic
     Dosage: UNK
     Route: 065
     Dates: start: 2011
  8. ANASTROZOLE [Suspect]
     Active Substance: ANASTROZOLE
     Indication: Breast cancer metastatic
     Dosage: UNK
     Route: 065
  9. CALCIUM [Suspect]
     Active Substance: CALCIUM
     Indication: Supplementation therapy
     Dosage: UNK
     Route: 065
     Dates: start: 2011
  10. GEMCITABINE [Suspect]
     Active Substance: GEMCITABINE
     Indication: Metastases to lung
     Dosage: UNK
     Route: 065
     Dates: start: 2011
  11. GEMCITABINE [Suspect]
     Active Substance: GEMCITABINE
     Indication: Metastases to liver
  12. GEMCITABINE [Suspect]
     Active Substance: GEMCITABINE
     Indication: Metastases to bone
  13. GEMCITABINE [Suspect]
     Active Substance: GEMCITABINE
     Indication: Invasive breast carcinoma
  14. GEMCITABINE [Suspect]
     Active Substance: GEMCITABINE
     Indication: Neoplasm progression
  15. PACLITAXEL [Suspect]
     Active Substance: PACLITAXEL
     Indication: Metastases to bone
     Dosage: UNK, WEEKLY
     Route: 065
     Dates: start: 2011
  16. PACLITAXEL [Suspect]
     Active Substance: PACLITAXEL
     Indication: Invasive breast carcinoma
     Dosage: UNK
     Route: 065
  17. PACLITAXEL [Suspect]
     Active Substance: PACLITAXEL
     Indication: Metastases to liver
  18. PACLITAXEL [Suspect]
     Active Substance: PACLITAXEL
     Indication: Metastases to lung
  19. PACLITAXEL [Suspect]
     Active Substance: PACLITAXEL
     Indication: Neoplasm progression
  20. DOXORUBICIN [Suspect]
     Active Substance: DOXORUBICIN
     Indication: Breast cancer metastatic
     Dosage: UNK, WEEKLY
     Route: 065
  21. TAMOXIFEN [Concomitant]
     Active Substance: TAMOXIFEN
     Indication: Product used for unknown indication
     Dosage: UNK
     Route: 065

REACTIONS (2)
  - Febrile neutropenia [Not Recovered/Not Resolved]
  - Breast cancer metastatic [Unknown]
